FAERS Safety Report 5217039-9 (Version None)
Quarter: 2007Q1

REPORT INFORMATION
  Report Type: 
  Country: None (occurrence: None)
  Receive Date: 20070124
  Receipt Date: 20070119
  Transmission Date: 20070707
  Serious: Yes (Death)
  Sender: FDA-Public Use
  Company Number: DE-AVENTIS-200613331DE

PATIENT
  Age: 71 Year
  Sex: Female
  Weight: 85 kg

DRUGS (2)
  1. CLEXANE [Suspect]
     Route: 058
     Dates: start: 20060801, end: 20060803
  2. ASPIRIN [Concomitant]
     Dosage: DOSE: NOT REPORTED

REACTIONS (2)
  - DYSPNOEA [None]
  - PULMONARY EMBOLISM [None]
